FAERS Safety Report 10559125 (Version 1)
Quarter: 2014Q4

REPORT INFORMATION
  Report Type: Spontaneous
  Country: US (occurrence: US)
  Receive Date: 20141103
  Receipt Date: 20141103
  Transmission Date: 20150529
  Serious: Yes (Other)
  Sender: FDA-Public Use
  Company Number: US-BRISTOL-MYERS SQUIBB COMPANY-21530597

PATIENT
  Age: 46 Year
  Sex: Male

DRUGS (3)
  1. VITAMIN [Concomitant]
     Active Substance: VITAMINS
  2. YERVOY [Suspect]
     Active Substance: IPILIMUMAB
     Route: 042
     Dates: start: 201409
  3. XANAX [Concomitant]
     Active Substance: ALPRAZOLAM
     Indication: SLEEP DISORDER

REACTIONS (1)
  - Clavicle fracture [Unknown]

NARRATIVE: CASE EVENT DATE: 20141020
